FAERS Safety Report 5257232-2 (Version None)
Quarter: 2007Q1

REPORT INFORMATION
  Report Type: 
  Country: None (occurrence: None)
  Receive Date: 20070307
  Receipt Date: 20070228
  Transmission Date: 20070707
  Serious: Yes (Hospitalization)
  Sender: FDA-Public Use
  Company Number: GR-JNJFOC-20070300014

PATIENT
  Age: 42 Year
  Sex: Male
  Weight: 144 kg

DRUGS (8)
  1. REMICADE [Suspect]
     Indication: PSORIATIC ARTHROPATHY
     Route: 042
  2. REMICADE [Suspect]
     Indication: PSORIASIS
     Route: 042
  3. METHOTREXATE [Concomitant]
     Indication: PSORIASIS
     Route: 030
  4. THYROHORMONE [Concomitant]
     Indication: THYROIDECTOMY
     Route: 048
  5. FOLIC ACID [Concomitant]
     Route: 048
  6. ENALAPRIL MALEATE [Concomitant]
     Indication: HYPERTENSION
     Route: 048
  7. GLUCOPHAGE [Concomitant]
     Route: 048
  8. DIAMIKRON [Concomitant]
     Route: 048

REACTIONS (1)
  - PERICARDITIS [None]
